FAERS Safety Report 10185700 (Version 1)
Quarter: 2014Q2

REPORT INFORMATION
  Report Type: Spontaneous
  Country: US (occurrence: US)
  Receive Date: 20140521
  Receipt Date: 20140521
  Transmission Date: 20141212
  Serious: Yes (Hospitalization, Other)
  Sender: FDA-Public Use
  Company Number: US-ABBVIE-14P-163-1237368-00

PATIENT
  Age: 47 Year
  Sex: Female

DRUGS (1)
  1. LEVOTHYROXINE [Suspect]
     Indication: HYPOTHYROIDISM
     Dosage: INCREASED PRIOR TO ADMISSION

REACTIONS (3)
  - Hypokalaemia [Recovered/Resolved]
  - Paralysis [Recovered/Resolved]
  - Hyperthyroidism [Recovered/Resolved]
